FAERS Safety Report 22383577 (Version 1)
Quarter: 2023Q2

REPORT INFORMATION
  Report Type: Spontaneous
  Country: FR (occurrence: FR)
  Receive Date: 20230530
  Receipt Date: 20230530
  Transmission Date: 20230722
  Serious: Yes (Hospitalization)
  Sender: FDA-Public Use
  Company Number: None

PATIENT
  Age: 33 Year
  Sex: Male

DRUGS (3)
  1. QUETIAPINE FUMARATE [Suspect]
     Active Substance: QUETIAPINE FUMARATE
     Indication: Product used for unknown indication
     Dosage: 800 MILLIGRAM, QD (800MG/D)
     Route: 048
     Dates: start: 20220905, end: 20230420
  2. LOXAPINE [Concomitant]
     Active Substance: LOXAPINE
     Dosage: 75 MILLIGRAM, QD (75MG/D)
     Route: 048
     Dates: start: 20220801, end: 20230508
  3. ARIPIPRAZOLE [Concomitant]
     Active Substance: ARIPIPRAZOLE
     Dosage: 30 MILLIGRAM, QD (30MG/D)
     Route: 048
     Dates: start: 20230413, end: 20230508

REACTIONS (2)
  - Catatonia [Recovered/Resolved]
  - Anxiety [Recovered/Resolved]

NARRATIVE: CASE EVENT DATE: 20230508
